FAERS Safety Report 20621363 (Version 1)
Quarter: 2022Q1

REPORT INFORMATION
  Report Type: Spontaneous
  Country: US (occurrence: US)
  Receive Date: 20220322
  Receipt Date: 20220322
  Transmission Date: 20220424
  Serious: No
  Sender: FDA-Public Use
  Company Number: US-PFIZER INC-202200327162

PATIENT
  Age: 94 Year
  Sex: Female
  Weight: 72.57 kg

DRUGS (1)
  1. PAXLOVID [Suspect]
     Active Substance: NIRMATRELVIR\RITONAVIR
     Indication: COVID-19
     Dosage: 2 PINK PILLS AND 1 WHITE PILL
     Route: 048
     Dates: start: 20220222

REACTIONS (2)
  - Product label confusion [Unknown]
  - Incorrect dose administered [Unknown]
